FAERS Safety Report 9541390 (Version 1)
Quarter: 2013Q3

REPORT INFORMATION
  Report Type: Spontaneous
  Country: US (occurrence: None)
  Receive Date: 20130919
  Receipt Date: 20130919
  Transmission Date: 20140515
  Serious: Yes (Other)
  Sender: FDA-Public Use
  Company Number: None

PATIENT
  Age: 38 Year
  Sex: Female
  Weight: 78.47 kg

DRUGS (2)
  1. DEPO MEDROL [Suspect]
     Indication: SOMATOFORM DISORDER
     Dosage: INJECTION ONCE ON  9/5/13
     Route: 042
     Dates: start: 20130905
  2. DEPO MEDROL [Suspect]
     Indication: BURSITIS
     Dosage: INJECTION ONCE ON  9/5/13
     Route: 042
     Dates: start: 20130905

REACTIONS (5)
  - Anger [None]
  - Mood swings [None]
  - Crying [None]
  - Insomnia [None]
  - Anxiety [None]
